FAERS Safety Report 8371197-6 (Version None)
Quarter: 2012Q2

REPORT INFORMATION
  Report Type: 
  Country: None (occurrence: None)
  Receive Date: 20120518
  Receipt Date: 20120509
  Transmission Date: 20120825
  Serious: Yes (Other)
  Sender: FDA-Public Use
  Company Number: GXBR2012US001136

PATIENT
  Age: 53 Year
  Sex: Male
  Weight: 108 kg

DRUGS (19)
  1. CLINDAMYCIN [Concomitant]
     Indication: PROPHYLAXIS
     Dosage: 300 MG, UNK
  2. DOXYCYCLINE HYCLATE [Concomitant]
     Dosage: 50 MG, QD
  3. ERGOCALCIFEROL [Concomitant]
     Dosage: 50000 U, QW
  4. MAGNESIUM OXIDE [Concomitant]
     Dosage: 400 MG, BID
  5. MULTIVITAMIN [Concomitant]
     Dosage: UNK DF, QD
  6. ASPIRIN [Concomitant]
     Dosage: 325 MG, QD
  7. LOSARTAN POTASSIUM [Concomitant]
     Dosage: 50 MG, QD
  8. POTASSIUM CHLORIDE [Concomitant]
     Dosage: 20 MEQ, BID
  9. CYCLOBENZAPRINE HCL [Suspect]
     Indication: MUSCLE SPASMS
     Dosage: 10 MG, QHS
     Route: 048
     Dates: end: 20120401
  10. FUROSEMIDE [Concomitant]
     Dosage: 80 MG, BID
  11. WARFARIN SODIUM [Concomitant]
     Dosage: 5 MG ON TUE/THURS/SAT/SUN AND 10MG ON MON/WED/FRI
     Route: 048
  12. TIKOSYN [Interacting]
     Indication: ATRIAL FIBRILLATION
     Dosage: 500 MG, BID
     Route: 048
     Dates: start: 20110101, end: 20120401
  13. TIKOSYN [Interacting]
     Dosage: 250 MG, BID
     Route: 048
     Dates: start: 20120401
  14. ALBUTEROL SULFATE [Concomitant]
     Dosage: 90 UG, PRN
  15. ALLOPURINOL [Concomitant]
     Dosage: 100 MG, BID
  16. FLUTICASONE PROPIONATE/SALMETEROL [Concomitant]
     Dosage: FLUTICASONE 500MCG AND SALMETEROL 50MCG, BID
  17. HYDROCODONE BITARTRATE AND ACETAMINOPHEN [Concomitant]
     Dosage: HYDROCODONE 7.5 MG AND ACETAMINOPHEN 300MG, TID
  18. LABETALOL HCL [Concomitant]
     Dosage: 100 MG, BID
  19. PRAVASTATIN [Concomitant]
     Dosage: 20 MG, QD

REACTIONS (2)
  - ELECTROCARDIOGRAM QT PROLONGED [None]
  - DRUG INTERACTION [None]
